FAERS Safety Report 12740648 (Version 1)
Quarter: 2016Q3

REPORT INFORMATION
  Report Type: Spontaneous
  Country: CN (occurrence: CN)
  Receive Date: 20160914
  Receipt Date: 20160914
  Transmission Date: 20161109
  Serious: Yes (Other)
  Sender: FDA-Public Use
  Company Number: CN-ROCHE-1828988

PATIENT
  Age: 51 Year
  Sex: Female
  Weight: 49 kg

DRUGS (5)
  1. OXALIPLATIN. [Suspect]
     Active Substance: OXALIPLATIN
     Indication: COLON CANCER
     Route: 041
     Dates: start: 20160614, end: 20160614
  2. OMEPRAZOLE. [Concomitant]
     Active Substance: OMEPRAZOLE
     Dosage: ONCE AND VOMIT PREVENTION
     Route: 041
     Dates: start: 20160614
  3. XELODA [Suspect]
     Active Substance: CAPECITABINE
     Indication: COLON CANCER
     Route: 048
     Dates: start: 20160614, end: 20160627
  4. TROPISETRON HYDROCHLORIDE [Concomitant]
     Active Substance: TROPISETRON HYDROCHLORIDE
     Dosage: ONCE, INDICATION: PROTECTING STOMACH AND VOMIT PREVENTION
     Route: 041
     Dates: start: 20160614
  5. GLUCOSE [Concomitant]
     Active Substance: DEXTROSE
     Dosage: AS DISSOLVENT
     Route: 041
     Dates: start: 20160614, end: 20160614

REACTIONS (5)
  - Hepatic function abnormal [Recovering/Resolving]
  - Neutrophil count decreased [Recovering/Resolving]
  - White blood cell count decreased [Recovering/Resolving]
  - Nausea [Recovering/Resolving]
  - Appetite disorder [Recovering/Resolving]

NARRATIVE: CASE EVENT DATE: 20160618
